FAERS Safety Report 5004131-7 (Version None)
Quarter: 2006Q2

REPORT INFORMATION
  Report Type: 
  Country: None (occurrence: None)
  Receive Date: 20060511
  Receipt Date: 20060428
  Transmission Date: 20061013
  Serious: Yes (Other)
  Sender: FDA-Public Use
  Company Number: 2006058368

PATIENT
  Age: 77 Year
  Sex: Male

DRUGS (2)
  1. VIAGRA [Suspect]
     Indication: ERECTILE DYSFUNCTION
     Dosage: 50 MG
     Dates: start: 20050901
  2. TAMSULOSIN HYDROCHLORIDE [Concomitant]

REACTIONS (6)
  - DYSPHAGIA [None]
  - HALLUCINATION [None]
  - HEART RATE IRREGULAR [None]
  - HYPERSENSITIVITY [None]
  - PALATAL OEDEMA [None]
  - TONGUE DISORDER [None]
